FAERS Safety Report 6775684-3 (Version None)
Quarter: 2010Q2

REPORT INFORMATION
  Report Type: 
  Country: None (occurrence: None)
  Receive Date: 20100617
  Receipt Date: 20100616
  Transmission Date: 20101027
  Serious: Yes (Death, Hospitalization, Other)
  Sender: FDA-Public Use
  Company Number: BE-ABBOTT-10P-013-0651214-00

PATIENT
  Sex: Female

DRUGS (1)
  1. HUMIRA [Suspect]
     Indication: PSORIATIC ARTHROPATHY
     Dates: start: 20071105

REACTIONS (8)
  - ANAEMIA [None]
  - ARTERITIS CORONARY [None]
  - HYPOVOLAEMIC SHOCK [None]
  - INCISION SITE INFECTION [None]
  - INCREASED BRONCHIAL SECRETION [None]
  - MYOCARDIAL INFARCTION [None]
  - SEPTIC SHOCK [None]
  - VASCULAR PSEUDOANEURYSM [None]
